FAERS Safety Report 9562079 (Version 1)
Quarter: 2013Q3

REPORT INFORMATION
  Report Type: Spontaneous
  Country: US (occurrence: US)
  Receive Date: 20130927
  Receipt Date: 20130927
  Transmission Date: 20140515
  Serious: No
  Sender: FDA-Public Use
  Company Number: US-009507513-1309USA009417

PATIENT
  Age: 34 Year
  Sex: Male

DRUGS (2)
  1. SAPHRIS [Suspect]
     Indication: BIPOLAR DISORDER
     Dosage: 10 MG AT BEDTIME DAILY
     Route: 048
     Dates: start: 20130415, end: 20130904
  2. LITHIUM [Concomitant]
     Dosage: 600 MG, QD

REACTIONS (3)
  - Spermatogenesis abnormal [Unknown]
  - Sperm concentration abnormal [Unknown]
  - Infertility male [Unknown]
